FAERS Safety Report 10269746 (Version 1)
Quarter: 2014Q3

REPORT INFORMATION
  Report Type: Report from Study
  Country: BR (occurrence: BR)
  Receive Date: 20140701
  Receipt Date: 20140701
  Transmission Date: 20150326
  Serious: Yes (Hospitalization)
  Sender: FDA-Public Use
  Company Number: BR-ROCHE-1427023

PATIENT
  Sex: Female
  Weight: 10 kg

DRUGS (4)
  1. PULMOZYME [Suspect]
     Active Substance: DORNASE ALFA
     Indication: CYSTIC FIBROSIS
     Dosage: INHALATION OF 1 AMPOULE A DAY
     Route: 065
  2. URSACOL [Concomitant]
     Active Substance: URSODIOL
     Indication: LIVER DISORDER
     Dosage: 1 TABLET.
     Route: 065
  3. TOBRAMYCIN [Concomitant]
     Active Substance: TOBRAMYCIN
     Dosage: 1 AMPOULE
     Route: 065
  4. PANCREATIN [Concomitant]
     Active Substance: PANCRELIPASE
     Dosage: 8 OF 10.000 A DAY TOOK IN MEALS
     Route: 065

REACTIONS (2)
  - Pain [Unknown]
  - Cystic fibrosis [Not Recovered/Not Resolved]
